FAERS Safety Report 9058492 (Version 1)
Quarter: 2013Q1

REPORT INFORMATION
  Report Type: Spontaneous
  Country: US (occurrence: None)
  Receive Date: 20130205
  Receipt Date: 20130205
  Transmission Date: 20140127
  Serious: Yes (Life-Threatening, Hospitalization, Disabling)
  Sender: FDA-Public Use
  Company Number: None

PATIENT
  Age: 51 Year
  Sex: Female
  Weight: 78.02 kg

DRUGS (1)
  1. AMOXICILLIN AND CLAVULANATE POTA 875/125MG SANDOZ [Suspect]
     Indication: SINUSITIS
     Dosage: 1 TABLET 2 PER DAY PO
     Dates: start: 20110903, end: 20111103

REACTIONS (9)
  - Gastric disorder [None]
  - Eye disorder [None]
  - Energy increased [None]
  - Fatigue [None]
  - Chromaturia [None]
  - Vision blurred [None]
  - Hepatic function abnormal [None]
  - Autoimmune hepatitis [None]
  - Adverse drug reaction [None]
